FAERS Safety Report 8212744-4 (Version None)
Quarter: 2012Q1

REPORT INFORMATION
  Report Type: 
  Country: None (occurrence: None)
  Receive Date: 20120315
  Receipt Date: 20120313
  Transmission Date: 20120608
  Serious: Yes (Hospitalization, Disabling, Other)
  Sender: FDA-Public Use
  Company Number: US-MERCK-1104USA02658

PATIENT
  Age: 53 Year
  Sex: Female
  Weight: 62 kg

DRUGS (9)
  1. FOSAMAX [Suspect]
     Route: 048
     Dates: start: 20080218, end: 20100301
  2. BONIVA [Suspect]
     Indication: OSTEOPOROSIS
     Route: 048
     Dates: start: 20100301, end: 20100901
  3. BONIVA [Suspect]
     Indication: OSTEOPENIA
     Route: 048
     Dates: start: 20100301, end: 20100901
  4. FOSAMAX [Suspect]
     Route: 048
     Dates: start: 20030101, end: 20080201
  5. FOSAMAX PLUS D [Suspect]
     Indication: PROPHYLAXIS
     Route: 048
  6. ALENDRONATE SODIUM [Suspect]
     Indication: OSTEOPENIA
     Route: 048
     Dates: start: 20080909, end: 20090101
  7. FOSAMAX [Suspect]
     Indication: OSTEOPOROSIS
     Route: 048
     Dates: start: 19990401, end: 20100301
  8. FOSAMAX [Suspect]
     Route: 048
     Dates: start: 20030101, end: 20080201
  9. FOSAMAX [Suspect]
     Indication: OSTEOPENIA
     Route: 048
     Dates: start: 19990401, end: 20100301

REACTIONS (31)
  - CONSTIPATION [None]
  - PSORIASIS [None]
  - ARTHRALGIA [None]
  - HAEMOCHROMATOSIS [None]
  - HEART RATE IRREGULAR [None]
  - HYPOVOLAEMIA [None]
  - OSTEOARTHRITIS [None]
  - SEBORRHOEIC KERATOSIS [None]
  - HORMONE LEVEL ABNORMAL [None]
  - FALL [None]
  - EYELID INJURY [None]
  - ADVERSE EVENT [None]
  - HYPOTENSION [None]
  - PARAESTHESIA [None]
  - LOW TURNOVER OSTEOPATHY [None]
  - WEIGHT INCREASED [None]
  - FEMUR FRACTURE [None]
  - ANTINUCLEAR ANTIBODY POSITIVE [None]
  - CHONDROCALCINOSIS PYROPHOSPHATE [None]
  - PAIN IN EXTREMITY [None]
  - IMPAIRED HEALING [None]
  - ANAEMIA [None]
  - NIGHT BLINDNESS [None]
  - PLEURISY [None]
  - FATIGUE [None]
  - SCIATICA [None]
  - ANAEMIA POSTOPERATIVE [None]
  - PLANTAR FASCIITIS [None]
  - VITAMIN D DEFICIENCY [None]
  - PSORIATIC ARTHROPATHY [None]
  - BREAST DISORDER [None]
